FAERS Safety Report 6062713-8 (Version None)
Quarter: 2009Q1

REPORT INFORMATION
  Report Type: 
  Country: None (occurrence: None)
  Receive Date: 20090203
  Receipt Date: 20090121
  Transmission Date: 20090719
  Serious: Yes (Other)
  Sender: FDA-Public Use
  Company Number: AT-ELI_LILLY_AND_COMPANY-AT200901005111

PATIENT
  Age: 40 Year

DRUGS (1)
  1. STRATTERA [Suspect]

REACTIONS (1)
  - SUICIDAL IDEATION [None]
